FAERS Safety Report 24410806 (Version 1)
Quarter: 2024Q4

REPORT INFORMATION
  Report Type: Spontaneous
  Country: US (occurrence: None)
  Receive Date: 20241007
  Receipt Date: 20241007
  Transmission Date: 20250114
  Serious: Yes (Other)
  Sender: Public
  Company Number: None

PATIENT
  Age: 70 Year
  Sex: Female
  Weight: 56.7 kg

DRUGS (6)
  1. DIFLUPREDNATE [Suspect]
     Active Substance: DIFLUPREDNATE
     Indication: Periorbital infection
     Dosage: OTHER ROUTE : EYE DROPS;?
     Route: 050
     Dates: start: 20240817, end: 20240908
  2. THYROID [Concomitant]
     Active Substance: LEVOTHYROXINE\LIOTHYRONINE
  3. PANTOPRAZOLE [Concomitant]
     Active Substance: PANTOPRAZOLE
  4. MELOXICAM [Concomitant]
     Active Substance: MELOXICAM
  5. PROGESTERONE [Concomitant]
     Active Substance: PROGESTERONE
  6. ELESTRIN [Concomitant]
     Active Substance: ESTRADIOL

REACTIONS (1)
  - Madarosis [None]

NARRATIVE: CASE EVENT DATE: 20240801
